FAERS Safety Report 4846139-8 (Version None)
Quarter: 2005Q4

REPORT INFORMATION
  Report Type: 
  Country: None (occurrence: None)
  Receive Date: 20051130
  Receipt Date: 20051116
  Transmission Date: 20060501
  Serious: Yes (Hospitalization)
  Sender: FDA-Public Use
  Company Number: 012006

PATIENT
  Age: 60 Year
  Sex: Male

DRUGS (6)
  1. PRIALT [Suspect]
     Indication: PAIN
     Dosage: SEE IMAGE
     Route: 037
     Dates: start: 20051007, end: 20051001
  2. PRIALT [Suspect]
     Indication: PAIN
     Dosage: SEE IMAGE
     Route: 037
     Dates: start: 20050930, end: 20051003
  3. PRIALT [Suspect]
     Indication: PAIN
     Dosage: SEE IMAGE
     Route: 037
     Dates: start: 20051003, end: 20051005
  4. PRIALT [Suspect]
     Indication: PAIN
     Dosage: SEE IMAGE
     Route: 037
     Dates: start: 20051005, end: 20051007
  5. PRIALT [Suspect]
     Indication: PAIN
     Dosage: SEE IMAGE
     Route: 037
     Dates: start: 20051001, end: 20051103
  6. PRIALT [Suspect]
     Indication: PAIN
     Dosage: SEE IMAGE
     Route: 037
     Dates: start: 20051103, end: 20051107

REACTIONS (20)
  - ABNORMAL BEHAVIOUR [None]
  - AGITATION [None]
  - ASTHENIA [None]
  - BACK PAIN [None]
  - CEREBROVASCULAR ACCIDENT [None]
  - CONDITION AGGRAVATED [None]
  - CONFUSIONAL STATE [None]
  - DECREASED APPETITE [None]
  - DIFFICULTY IN WALKING [None]
  - DIZZINESS [None]
  - DYSARTHRIA [None]
  - DYSPNOEA [None]
  - GRUNTING [None]
  - HYPERHIDROSIS [None]
  - INSOMNIA [None]
  - MOANING [None]
  - NAUSEA [None]
  - NECK PAIN [None]
  - PAIN [None]
  - PAIN IN EXTREMITY [None]
